FAERS Safety Report 6072946-2 (Version None)
Quarter: 2009Q1

REPORT INFORMATION
  Report Type: 
  Country: None (occurrence: None)
  Receive Date: 20090205
  Receipt Date: 20090119
  Transmission Date: 20090719
  Serious: Yes (Other)
  Sender: FDA-Public Use
  Company Number: A0764124A

PATIENT
  Sex: Female

DRUGS (1)
  1. SODIUM FLUORIDE + POTASSIUM NITRATE TOOTHPASTE (SODIUM FLUORIDE + POTA [Suspect]
     Indication: DENTAL CLEANING
     Dosage: DENTAL

REACTIONS (1)
  - ATRIAL FIBRILLATION [None]
